FAERS Safety Report 9621418 (Version 1)
Quarter: 2013Q4

REPORT INFORMATION
  Report Type: Spontaneous
  Country: US (occurrence: US)
  Receive Date: 20131015
  Receipt Date: 20131015
  Transmission Date: 20140711
  Serious: Yes (Other)
  Sender: FDA-Public Use
  Company Number: US-PFIZER INC-2013291435

PATIENT
  Sex: Male

DRUGS (3)
  1. VIAGRA [Suspect]
     Indication: ERECTILE DYSFUNCTION
     Dosage: 50 MG, AS NEEDED
     Dates: start: 1998
  2. VIAGRA [Suspect]
     Dosage: 100 MG, AS NEEDED
  3. VIAGRA [Suspect]
     Dosage: 50 MG, AS NEEDED

REACTIONS (1)
  - Type 2 diabetes mellitus [Unknown]
